FAERS Safety Report 16132521 (Version 1)
Quarter: 2019Q1

REPORT INFORMATION
  Report Type: Spontaneous
  Country: US (occurrence: US)
  Receive Date: 20190329
  Receipt Date: 20190329
  Transmission Date: 20190418
  Serious: Yes (Other)
  Sender: FDA-Public Use
  Company Number: US-CIPLA LTD.-2019US01603

PATIENT

DRUGS (1)
  1. DICLOFENAC [Suspect]
     Active Substance: DICLOFENAC
     Indication: LIMB INJURY
     Dosage: UNK
     Route: 061
     Dates: start: 201903, end: 201903

REACTIONS (12)
  - Pain [Unknown]
  - Gait inability [Not Recovered/Not Resolved]
  - Oropharyngeal pain [Not Recovered/Not Resolved]
  - Glossitis [Unknown]
  - Chills [Not Recovered/Not Resolved]
  - Autoantibody positive [Not Recovered/Not Resolved]
  - Malaise [Unknown]
  - Glossodynia [Not Recovered/Not Resolved]
  - Paraesthesia [Unknown]
  - Vasculitis [Not Recovered/Not Resolved]
  - Blood creatinine increased [Not Recovered/Not Resolved]
  - Pyrexia [Not Recovered/Not Resolved]

NARRATIVE: CASE EVENT DATE: 201903
